FAERS Safety Report 6031109-7 (Version None)
Quarter: 2008Q4

REPORT INFORMATION
  Report Type: 
  Country: None (occurrence: None)
  Receive Date: 20081222
  Receipt Date: 20081118
  Transmission Date: 20090506
  Serious: No
  Sender: FDA-Public Use
  Company Number: US-WYE-H06907308

PATIENT
  Age: 55 Year
  Sex: Female
  Weight: 124.85 kg

DRUGS (3)
  1. PRISTIQ [Suspect]
     Indication: DEPRESSION
     Dosage: 50 MG 1X PER 1 DAY, ORAL
     Route: 048
     Dates: start: 20081101
  2. NEXIUM [Concomitant]
  3. NITROL [Concomitant]

REACTIONS (1)
  - URTICARIA [None]
